FAERS Safety Report 5290559-7 (Version None)
Quarter: 2007Q2

REPORT INFORMATION
  Report Type: 
  Country: None (occurrence: None)
  Receive Date: 20070409
  Receipt Date: 20070405
  Transmission Date: 20071010
  Serious: Yes (Hospitalization, Other)
  Sender: FDA-Public Use
  Company Number: US-PURDUE-USA_2007_0026996

PATIENT
  Age: 56 Year
  Sex: Female

DRUGS (5)
  1. OXYCONTIN [Suspect]
     Indication: PAIN
     Dosage: 60 MG, DAILY
     Route: 048
  2. LAPATINIB [Suspect]
     Indication: BREAST CANCER METASTATIC
     Dosage: 1250 MG, DAILY
     Route: 048
     Dates: start: 20061122
  3. CAPECITABINE [Suspect]
     Indication: BREAST CANCER METASTATIC
     Dosage: 3450 MG, DAILY
     Route: 048
     Dates: start: 20061122
  4. CLONAZEPAM [Concomitant]
     Indication: DRUG USE FOR UNKNOWN INDICATION
     Dosage: UNK, UNK
  5. DULOXETINE [Concomitant]
     Indication: DRUG USE FOR UNKNOWN INDICATION
     Dosage: UNK, UNK

REACTIONS (7)
  - ABDOMINAL PAIN [None]
  - ANXIETY [None]
  - BREAST CANCER METASTATIC [None]
  - CONSTIPATION [None]
  - LYMPHADENOPATHY [None]
  - PANIC ATTACK [None]
  - SUPRAPUBIC PAIN [None]
